FAERS Safety Report 11448184 (Version 1)
Quarter: 2015Q3

REPORT INFORMATION
  Report Type: Spontaneous
  Country: CH (occurrence: CH)
  Receive Date: 20150902
  Receipt Date: 20150902
  Transmission Date: 20151125
  Serious: Yes (Other)
  Sender: FDA-Public Use
  Company Number: CH-AMGEN-CHESP2015088379

PATIENT
  Age: 73 Year
  Sex: Female

DRUGS (1)
  1. PROLIA [Suspect]
     Active Substance: DENOSUMAB
     Indication: PRODUCT USED FOR UNKNOWN INDICATION
     Dosage: UNK
     Route: 065
     Dates: start: 201310

REACTIONS (9)
  - Hyperlipidaemia [Unknown]
  - Obesity [Unknown]
  - Metastases to spine [Unknown]
  - Cell marker increased [Unknown]
  - Hypertension [Unknown]
  - Skin injury [Unknown]
  - Metastases to bone [Unknown]
  - Osteoarthritis [Unknown]
  - Fall [Unknown]

NARRATIVE: CASE EVENT DATE: 20131001
